FAERS Safety Report 24322106 (Version 2)
Quarter: 2024Q4

REPORT INFORMATION
  Report Type: Spontaneous
  Country: CH (occurrence: CH)
  Receive Date: 20240916
  Receipt Date: 20241008
  Transmission Date: 20250115
  Serious: Yes (Hospitalization, Other)
  Sender: AMGEN
  Company Number: None

PATIENT
  Age: 64 Year
  Sex: Female

DRUGS (13)
  1. BLINCYTO [Suspect]
     Active Substance: BLINATUMOMAB
     Indication: Chronic myeloid leukaemia
     Dosage: 28 MICROGRAM, QD (CYCLICAL), D1-D28, FIFTH CYCLE OF THERAPY (ADMINISTERED ON 30-APR-2024), BOLUS
     Route: 040
     Dates: start: 20231107
  2. ICLUSIG [Suspect]
     Active Substance: PONATINIB\PONATINIB HYDROCHLORIDE
     Indication: Chronic myeloid leukaemia
     Dosage: 15 MILLIGRAM, QD, (CYCLICAL) FIFTH CYCLE OF THERAPY (ADMINISTERED ON 30-APR-2024)
     Route: 048
     Dates: start: 20231107
  3. CYTARABINE [Suspect]
     Active Substance: CYTARABINE
     Indication: Chronic myeloid leukaemia
     Dosage: 40 MILLIGRAM, CYCLICAL
     Route: 037
     Dates: start: 20231025, end: 20240723
  4. CYTARABINE [Suspect]
     Active Substance: CYTARABINE
     Dosage: UNK, (SEVENTH CYCLE OF THERAPY ADMINISTERED ON 23-JUL-2024)
     Route: 037
     Dates: start: 20240723
  5. METHOTREXATE SODIUM [Suspect]
     Active Substance: METHOTREXATE SODIUM
     Indication: Chronic myeloid leukaemia
     Dosage: 15 MILLIGRAM, CYCLICAL
     Route: 037
     Dates: start: 20231025, end: 20240723
  6. METHOTREXATE SODIUM [Suspect]
     Active Substance: METHOTREXATE SODIUM
     Dosage: UNK, SEVENTH CYCLE OF THERAPY ADMINISTERED ON 23-JUL-2024
     Route: 037
     Dates: start: 20240723
  7. SOLU-CORTEF [Suspect]
     Active Substance: HYDROCORTISONE SODIUM SUCCINATE
     Indication: Chronic myeloid leukaemia
     Dosage: 22.5 MILLIGRAM, CYCLICAL
     Route: 037
     Dates: start: 20231025, end: 20240723
  8. SOLU-CORTEF [Suspect]
     Active Substance: HYDROCORTISONE SODIUM SUCCINATE
     Dosage: UNK, SEVENTH CYCLE OF THERAPY ADMINISTERED ON 23-JUL-2024
     Route: 037
     Dates: start: 20240723
  9. BACTRIM [Concomitant]
     Active Substance: SULFAMETHOXAZOLE\TRIMETHOPRIM
     Dosage: 1 DOSAGE FORM (1 TABLET 3 TIMES A WEEK CHRONIC THERAPY (1 {DF})
     Route: 048
  10. VALACYCLOVIR HYDROCHLORIDE [Concomitant]
     Active Substance: VALACYCLOVIR HYDROCHLORIDE
     Dosage: 500 MILLIGRAM, Q12H, CHRONIC THERAPY
     Route: 048
  11. AMLODIPINE MESYLATE [Concomitant]
     Active Substance: AMLODIPINE MESYLATE
     Dosage: 10 MILLIGRAM, QD, CHRONIC THERAPY
     Route: 048
  12. CO CANDESARTAN SPIRIG [Concomitant]
     Dosage: UNK, QD, CHRONIC THERAPY 1 DF = CO-CANDESARTAN SPIRIG-HC 16/12.5 MG (1 {DF})
     Route: 048
  13. FOLIC ACID [Concomitant]
     Active Substance: FOLIC ACID
     Dosage: 5 MILLIGRAM, QD, CHRONIC THERAPY
     Route: 048

REACTIONS (1)
  - Acute psychosis [Recovering/Resolving]

NARRATIVE: CASE EVENT DATE: 20240701
